FAERS Safety Report 6211037-4 (Version None)
Quarter: 2009Q2

REPORT INFORMATION
  Report Type: 
  Country: None (occurrence: None)
  Receive Date: 20090602
  Receipt Date: 20071210
  Transmission Date: 20091009
  Serious: Yes (Other)
  Sender: FDA-Public Use
  Company Number: US-ASTRAZENECA-2006UW23245

PATIENT
  Age: 38 Year
  Sex: Female
  Weight: 88 kg

DRUGS (20)
  1. SEROQUEL [Suspect]
     Indication: DEPRESSION
     Route: 048
     Dates: start: 20000101
  2. SEROQUEL [Suspect]
     Indication: ANXIETY
     Route: 048
     Dates: start: 20000101
  3. SEROQUEL [Suspect]
     Indication: SLEEP DISORDER
     Route: 048
     Dates: start: 20000101
  4. SEROQUEL [Suspect]
     Dosage: STRENGTH 50 - 400 MG, DOSE 100 - 800 MG DAILY
     Route: 048
     Dates: start: 20030128
  5. SEROQUEL [Suspect]
     Dosage: STRENGTH 50 - 400 MG, DOSE 100 - 800 MG DAILY
     Route: 048
     Dates: start: 20030128
  6. SEROQUEL [Suspect]
     Dosage: STRENGTH 50 - 400 MG, DOSE 100 - 800 MG DAILY
     Route: 048
     Dates: start: 20030128
  7. NOVOLIN INSULIN [Concomitant]
     Dates: start: 20000106
  8. AMITRIPTLINE HYDROCHLORIDE TAB [Concomitant]
     Dosage: STRENGTH 25 - 100 MG, DOSE 100 - 200 MG DAILY
     Route: 048
  9. EFFEXOR XR [Concomitant]
     Dosage: STRENGTH 75 - 150 MG, DOSE 75 - 300 MG DAILY
     Route: 048
     Dates: start: 20001130
  10. BUSPIRONE HCL [Concomitant]
     Route: 048
  11. TRILEPTAL [Concomitant]
     Route: 048
  12. TRAZODONE HCL [Concomitant]
     Dosage: STRENGTH 100 - 150 MG
     Route: 048
  13. FAMOTIDINE [Concomitant]
     Route: 048
  14. RISPERDAL [Concomitant]
     Route: 048
     Dates: start: 20010222
  15. AVANDIA [Concomitant]
     Dosage: 4 - 8 MG DAILY
     Route: 048
  16. WELLBUTRIN SR [Concomitant]
     Route: 048
     Dates: start: 20020103
  17. ZYPREXA [Concomitant]
     Route: 048
     Dates: start: 20000509
  18. REMERON [Concomitant]
     Route: 048
     Dates: start: 20000831
  19. VIOXX [Concomitant]
     Route: 048
     Dates: start: 20001031
  20. GLUCOPHAGE [Concomitant]
     Route: 048
     Dates: start: 20010526

REACTIONS (3)
  - DIABETES MELLITUS [None]
  - DIABETIC NEUROPATHY [None]
  - TYPE 2 DIABETES MELLITUS [None]
